FAERS Safety Report 13380551 (Version 1)
Quarter: 2017Q1

REPORT INFORMATION
  Report Type: Report from Study
  Country: US (occurrence: US)
  Receive Date: 20170329
  Receipt Date: 20170329
  Transmission Date: 20170429
  Serious: No
  Sender: FDA-Public Use
  Company Number: US-AMGEN-USASL2017043719

PATIENT
  Sex: Female

DRUGS (2)
  1. ENBREL [Suspect]
     Active Substance: ETANERCEPT
     Indication: RHEUMATOID ARTHRITIS
     Dosage: 50 MG, QWK
     Route: 065
     Dates: start: 2016
  2. METHOTREXATE. [Concomitant]
     Active Substance: METHOTREXATE
     Dosage: 7.5 MG (2.5 MG X 3), QWK

REACTIONS (7)
  - Nasal dryness [Unknown]
  - Injection site pain [Unknown]
  - Dermatitis contact [Unknown]
  - Therapeutic response decreased [Recovering/Resolving]
  - Injection site reaction [Unknown]
  - Dry eye [Unknown]
  - Laceration [Not Recovered/Not Resolved]
